FAERS Safety Report 5820188-5 (Version None)
Quarter: 2008Q3

REPORT INFORMATION
  Report Type: 
  Country: None (occurrence: None)
  Receive Date: 20080724
  Receipt Date: 20080717
  Transmission Date: 20090109
  Serious: Yes (Other)
  Sender: FDA-Public Use
  Company Number: PHHY2008DE14531

PATIENT
  Sex: Female

DRUGS (2)
  1. EUCREAS [Suspect]
     Dosage: 850 MG/50 MG
     Dates: start: 20080501, end: 20080601
  2. EUCREAS [Suspect]
     Dosage: 1000 MG/50 MG
     Dates: start: 20080601

REACTIONS (5)
  - DIARRHOEA [None]
  - FLATULENCE [None]
  - GASTROINTESTINAL DISORDER [None]
  - RASH GENERALISED [None]
  - SECRETION DISCHARGE [None]
